FAERS Safety Report 25517736 (Version 2)
Quarter: 2025Q3

REPORT INFORMATION
  Report Type: Report from Study
  Country: US (occurrence: US)
  Receive Date: 20250704
  Receipt Date: 20250718
  Transmission Date: 20251021
  Serious: Yes (Other)
  Sender: ALEXION PHARMACEUTICALS
  Company Number: US-AstraZeneca-CH-00900311A

PATIENT
  Sex: Female

DRUGS (3)
  1. BENRALIZUMAB [Suspect]
     Active Substance: BENRALIZUMAB
     Indication: Asthma
     Dosage: 30 MILLIGRAM, Q8W
     Dates: start: 202505
  2. BENRALIZUMAB [Suspect]
     Active Substance: BENRALIZUMAB
  3. VITAMIN D [Concomitant]
     Active Substance: VITAMIN D NOS
     Route: 065

REACTIONS (5)
  - Pruritus [Unknown]
  - Dry skin [Unknown]
  - Hypothyroidism [Recovered/Resolved]
  - Diabetes mellitus [Unknown]
  - Vitamin D decreased [Unknown]
